FAERS Safety Report 16785650 (Version 1)
Quarter: 2019Q3

REPORT INFORMATION
  Report Type: Spontaneous
  Country: US (occurrence: US)
  Receive Date: 20190909
  Receipt Date: 20190909
  Transmission Date: 20191005
  Serious: Yes (Death)
  Sender: FDA-Public Use
  Company Number: US-PFIZER INC-2019370295

PATIENT
  Age: 41 Year
  Sex: Female

DRUGS (16)
  1. METHOTREXATE SODIUM. [Suspect]
     Active Substance: METHOTREXATE SODIUM
     Indication: T-CELL LYMPHOMA
  2. PROCARBAZINE [Suspect]
     Active Substance: PROCARBAZINE
     Indication: T-CELL LYMPHOMA
     Dosage: UNK
  3. VINCRISTINE SULFATE. [Suspect]
     Active Substance: VINCRISTINE SULFATE
     Indication: T-CELL LYMPHOMA
     Dosage: UNK
  4. CYTARABINE. [Suspect]
     Active Substance: CYTARABINE
     Indication: T-CELL LYMPHOMA
     Dosage: UNK
  5. METHOTREXATE SODIUM. [Suspect]
     Active Substance: METHOTREXATE SODIUM
     Indication: LYMPHOPROLIFERATIVE DISORDER
     Dosage: UNK (HIGH DOSE)
  6. METHYLPREDNISOLONE ACETATE. [Suspect]
     Active Substance: METHYLPREDNISOLONE ACETATE
     Indication: T-CELL LYMPHOMA
     Dosage: UNK
  7. METHYLPREDNISOLONE ACETATE. [Suspect]
     Active Substance: METHYLPREDNISOLONE ACETATE
     Indication: LYMPHOPROLIFERATIVE DISORDER
  8. PROCARBAZINE [Suspect]
     Active Substance: PROCARBAZINE
     Indication: LYMPHOPROLIFERATIVE DISORDER
  9. DIMETHYL FUMARATE [Concomitant]
     Active Substance: DIMETHYL FUMARATE
     Indication: RELAPSING-REMITTING MULTIPLE SCLEROSIS
     Dosage: UNK (ESCALATED OVER 5 YEARS)
     Dates: start: 2011
  10. VINCRISTINE SULFATE. [Suspect]
     Active Substance: VINCRISTINE SULFATE
     Indication: LYMPHOPROLIFERATIVE DISORDER
  11. ALEMTUZUMAB [Concomitant]
     Active Substance: ALEMTUZUMAB
     Indication: RELAPSING-REMITTING MULTIPLE SCLEROSIS
     Dosage: UNK ( FIRST DOSE)
     Dates: start: 201605
  12. RITUXIMAB. [Suspect]
     Active Substance: RITUXIMAB
     Indication: T-CELL LYMPHOMA
     Dosage: UNK (ESCALATED OVER 5 YEARS)
     Dates: start: 2011
  13. RITUXIMAB. [Suspect]
     Active Substance: RITUXIMAB
     Indication: LYMPHOPROLIFERATIVE DISORDER
     Dosage: 500 MG/M2, WEEKLY (INFUSIONS)
  14. ALEMTUZUMAB [Concomitant]
     Active Substance: ALEMTUZUMAB
     Dosage: UNK (SECOND DOSE)
     Dates: start: 201705
  15. CYTARABINE. [Suspect]
     Active Substance: CYTARABINE
     Indication: LYMPHOPROLIFERATIVE DISORDER
  16. GLATIRAMER ACETATE. [Concomitant]
     Active Substance: GLATIRAMER ACETATE
     Indication: RELAPSING-REMITTING MULTIPLE SCLEROSIS
     Dosage: UNK (ESCALATED OVER 5 YEARS)
     Dates: start: 2011

REACTIONS (2)
  - Off label use [Unknown]
  - Drug ineffective for unapproved indication [Fatal]
